FAERS Safety Report 9835341 (Version 2)
Quarter: 2014Q2

REPORT INFORMATION
  Report Type: Spontaneous
  Country: US (occurrence: US)
  Receive Date: 20140122
  Receipt Date: 20140424
  Transmission Date: 20141212
  Serious: No
  Sender: FDA-Public Use
  Company Number: US-BRISTOL-MYERS SQUIBB COMPANY-19949957

PATIENT
  Age: 66 Year
  Sex: Male

DRUGS (14)
  1. ELIQUIS [Suspect]
     Indication: ATRIAL FIBRILLATION
     Route: 048
     Dates: start: 20131218
  2. COUMADIN [Concomitant]
     Dosage: 1DF:3 UNIT NOS, A.D
  3. BABY ASPIRIN [Concomitant]
  4. QUETIAPINE [Concomitant]
  5. NIACIN [Concomitant]
  6. LISINOPRIL [Concomitant]
  7. METOPROLOL [Concomitant]
  8. MULTIVITAMIN [Concomitant]
  9. SIMVASTATIN [Concomitant]
  10. TAMSULOSIN [Concomitant]
  11. OMEPRAZOLE [Concomitant]
  12. VENLAFAXINE HCL [Concomitant]
  13. OSTEO BI-FLEX [Concomitant]
  14. COENZYME-Q10 [Concomitant]

REACTIONS (1)
  - Musculoskeletal pain [Recovered/Resolved]
